FAERS Safety Report 5382710-5 (Version None)
Quarter: 2007Q3

REPORT INFORMATION
  Report Type: 
  Country: None (occurrence: None)
  Receive Date: 20070710
  Receipt Date: 20070628
  Transmission Date: 20080115
  Serious: Yes (Disabling)
  Sender: FDA-Public Use
  Company Number: GB-ROCHE-501797

PATIENT
  Age: 71 Year
  Sex: Female
  Weight: 101.4 kg

DRUGS (9)
  1. XENICAL [Suspect]
     Indication: DRUG USE FOR UNKNOWN INDICATION
     Route: 048
     Dates: start: 20070508, end: 20070601
  2. LEVOTHYROXINE SODIUM [Concomitant]
     Route: 048
  3. ROSIGLITAZONE [Concomitant]
  4. ROSUVASTATIN [Concomitant]
  5. METFORMIN [Concomitant]
  6. METOCLOPRAMIDE [Concomitant]
  7. ATENOLOL [Concomitant]
  8. SLOZEM [Concomitant]
  9. OLMESARTAN MEDOXOMIL [Concomitant]

REACTIONS (1)
  - ARTHRALGIA [None]
